FAERS Safety Report 8492668 (Version 4)
Quarter: 2014Q1

REPORT INFORMATION
  Report Type: Spontaneous
  Country: FR (occurrence: FR)
  Receive Date: 20120403
  Receipt Date: 20140219
  Transmission Date: 20141002
  Serious: Yes (Hospitalization)
  Sender: FDA-Public Use
  Company Number: FR-B.I. PHARMACEUTICALS,INC./RIDGEFIELD-2012-FF-00374FF

PATIENT
  Age: 65 Year
  Sex: Female

DRUGS (10)
  1. SIFROL [Suspect]
     Indication: RESTLESS LEGS SYNDROME
     Dosage: 1.05 MG
     Route: 048
  2. MANTADIX [Suspect]
     Indication: PRODUCT USED FOR UNKNOWN INDICATION
     Dosage: 200 MG
     Route: 048
     Dates: end: 20121102
  3. IMUREL [Concomitant]
     Dosage: 100 MG
     Route: 048
     Dates: start: 2004, end: 20120211
  4. SPECIAFOLDINE [Concomitant]
     Dosage: 10 MG
     Route: 048
  5. RIVOTRIL [Concomitant]
     Dosage: 20 ANZ
     Route: 048
  6. DAFALGAN [Concomitant]
     Dosage: 3 G
     Route: 048
  7. LEVOTHYROX [Concomitant]
     Indication: HYPOTHYROIDISM
     Dosage: 175 MCG
     Route: 048
  8. LEVOTHYROX [Concomitant]
     Indication: HYPOTHYROIDISM
     Dosage: 12.5 MCG
     Route: 048
  9. SEROPLEX [Concomitant]
     Dosage: 5 MG
     Route: 048
     Dates: start: 201109
  10. HYZAAR 50 MG/12.5 MG [Concomitant]
     Indication: HYPERTENSION
     Route: 048
     Dates: end: 20121026

REACTIONS (1)
  - Rhabdomyolysis [Not Recovered/Not Resolved]
